FAERS Safety Report 18588130 (Version 2)
Quarter: 2020Q4

REPORT INFORMATION
  Report Type: Spontaneous
  Country: BE (occurrence: BE)
  Receive Date: 20201207
  Receipt Date: 20201208
  Transmission Date: 20210114
  Serious: No
  Sender: FDA-Public Use
  Company Number: BE-ELI_LILLY_AND_COMPANY-BE202011012738

PATIENT
  Sex: Male

DRUGS (1)
  1. TADALAFIL. [Suspect]
     Active Substance: TADALAFIL
     Indication: PRODUCT USED FOR UNKNOWN INDICATION
     Dosage: 5 DOSAGE FORM, UNKNOWN
     Route: 065

REACTIONS (6)
  - Back pain [Unknown]
  - Tinnitus [Unknown]
  - Visual impairment [Unknown]
  - Headache [Unknown]
  - Dyspnoea [Unknown]
  - Palpitations [Unknown]
